FAERS Safety Report 17956873 (Version 1)
Quarter: 2020Q2

REPORT INFORMATION
  Report Type: Spontaneous
  Country: US (occurrence: US)
  Receive Date: 20200629
  Receipt Date: 20200629
  Transmission Date: 20200714
  Serious: Yes (Other)
  Sender: FDA-Public Use
  Company Number: None

PATIENT
  Age: 57 Year
  Sex: Female
  Weight: 88.65 kg

DRUGS (22)
  1. COENZYME Q10 [Concomitant]
     Active Substance: UBIDECARENONE
  2. L-CARNITINE [Concomitant]
     Active Substance: LEVOCARNITINE
  3. TORESMIDE [Concomitant]
  4. POTASSIUM [Concomitant]
     Active Substance: POTASSIUM
  5. C [Concomitant]
  6. ALPHA LIPOIC ACID [Concomitant]
     Active Substance: .ALPHA.-LIPOIC ACID
  7. BIPAP [Concomitant]
     Active Substance: DEVICE
  8. QUINAPRIL. [Concomitant]
     Active Substance: QUINAPRIL
  9. METOPROLOL. [Concomitant]
     Active Substance: METOPROLOL
  10. AMLODIPINE LANTUS [Concomitant]
  11. BIOTIN [Concomitant]
     Active Substance: BIOTIN
  12. IRON [Concomitant]
     Active Substance: IRON
  13. METFORMIN HYDROCHLORIDE EXTENDED-RELEASE TABLETS, USP 500 MG [Suspect]
     Active Substance: METFORMIN HYDROCHLORIDE
     Indication: PRODUCT USED FOR UNKNOWN INDICATION
     Dosage: ?          QUANTITY:1 TABLET(S);?
     Route: 048
     Dates: start: 20040601, end: 20200512
  14. FISH AND FLAXSEED OIL [Concomitant]
  15. MAGNESIUM [Concomitant]
     Active Substance: MAGNESIUM
  16. VIT. D3 [Concomitant]
  17. VIT. B12 [Concomitant]
  18. MULTI [Concomitant]
  19. GARLIC. [Concomitant]
     Active Substance: GARLIC
  20. FOLIC ACID. [Concomitant]
     Active Substance: FOLIC ACID
  21. HUMALOG [Concomitant]
     Active Substance: INSULIN LISPRO
  22. ASPRIN [Concomitant]
     Active Substance: ASPIRIN

REACTIONS (2)
  - Furuncle [None]
  - Rash [None]

NARRATIVE: CASE EVENT DATE: 20200206
